FAERS Safety Report 9704205 (Version 2)
Quarter: 2013Q4

REPORT INFORMATION
  Report Type: Spontaneous
  Country: US (occurrence: US)
  Receive Date: 20131122
  Receipt Date: 20131205
  Transmission Date: 20140711
  Serious: Yes (Other)
  Sender: FDA-Public Use
  Company Number: PHEH2013US024414

PATIENT
  Sex: Male

DRUGS (2)
  1. EXFORGE HCT [Suspect]
     Dosage: UNK UKN, UNK
  2. EXFORGE HCT [Suspect]
     Dosage: UNK UKN, UNK

REACTIONS (2)
  - Type 1 diabetes mellitus [Unknown]
  - Drug ineffective [Unknown]
